FAERS Safety Report 8308722-7 (Version None)
Quarter: 2012Q2

REPORT INFORMATION
  Report Type: 
  Country: None (occurrence: None)
  Receive Date: 20120424
  Receipt Date: 20120417
  Transmission Date: 20120825
  Serious: Yes (Other)
  Sender: FDA-Public Use
  Company Number: ES-B.I. PHARMACEUTICALS,INC./RIDGEFIELD-2012-ES-00165ES

PATIENT
  Age: 79 Year
  Sex: Male

DRUGS (6)
  1. ATACAND [Concomitant]
     Dosage: 32 MG
     Route: 048
  2. PRADAXA [Suspect]
     Indication: ATRIAL FIBRILLATION
     Dosage: 150 MG
     Route: 048
     Dates: start: 20120216, end: 20120308
  3. VERAPAMIL HCL [Concomitant]
     Dosage: 80 MG
     Route: 048
  4. ACETYLSALICYLIC ACID SRT [Suspect]
     Dosage: 100 MG
     Route: 048
     Dates: start: 20100101
  5. CRESTOR [Concomitant]
     Dosage: 10 MG
     Route: 048
  6. ISOSORBIDA MONONITRATO [Concomitant]
     Dosage: 50 MG
     Route: 048

REACTIONS (3)
  - GINGIVAL BLEEDING [None]
  - ANAEMIA [None]
  - DRUG INTERACTION [None]
